FAERS Safety Report 17010304 (Version 2)
Quarter: 2019Q4

REPORT INFORMATION
  Report Type: Spontaneous
  Country: US (occurrence: US)
  Receive Date: 20191108
  Receipt Date: 20191120
  Transmission Date: 20200122
  Serious: No
  Sender: FDA-Public Use
  Company Number: US-PFIZER INC-2019339878

PATIENT
  Age: 10 Year
  Sex: Female
  Weight: 37.19 kg

DRUGS (6)
  1. BACTRIM [Concomitant]
     Active Substance: SULFAMETHOXAZOLE\TRIMETHOPRIM
     Indication: IMMUNE SYSTEM DISORDER
     Dosage: UNK (TMPSS TABLET TWICE A DAY MON, WED AND FRIDAY^S, 400-80 MG)
     Dates: start: 201908, end: 201910
  2. PREDNISONE. [Concomitant]
     Active Substance: PREDNISONE
     Indication: INFLAMMATION
     Dosage: 25 MG, UNK ((25 MG AND TAPERING OFF 5 MG EVERY 5 DAYS))
  3. OMEPRAZOLE. [Concomitant]
     Active Substance: OMEPRAZOLE
     Indication: ABDOMINAL DISCOMFORT
     Dosage: 20 MG, 1X/DAY
     Dates: start: 201908, end: 201910
  4. XELJANZ [Suspect]
     Active Substance: TOFACITINIB CITRATE
     Indication: IMMUNE SYSTEM DISORDER
     Dosage: 5 MG, 2X/DAY
     Route: 048
     Dates: start: 2019
  5. XELJANZ [Suspect]
     Active Substance: TOFACITINIB CITRATE
     Indication: GENE MUTATION
  6. PREDNISONE. [Concomitant]
     Active Substance: PREDNISONE
     Indication: SPLENOMEGALY
     Dosage: 5 MG, UNK (25 MG AND TAPERING OFF 5 MG EVERY 5 DAYS)
     Dates: start: 201908

REACTIONS (3)
  - Product use in unapproved indication [Unknown]
  - Off label use [Unknown]
  - Product use issue [Unknown]
